FAERS Safety Report 10033289 (Version 2)
Quarter: 2014Q2

REPORT INFORMATION
  Report Type: Spontaneous
  Country: PH (occurrence: PH)
  Receive Date: 20140324
  Receipt Date: 20140508
  Transmission Date: 20141212
  Serious: Yes (Hospitalization, Other)
  Sender: FDA-Public Use
  Company Number: PH-BRISTOL-MYERS SQUIBB COMPANY-20552444

PATIENT
  Age: 75 Year
  Sex: Male

DRUGS (3)
  1. ONGLYZA TABS 5 MG [Suspect]
     Indication: TYPE 2 DIABETES MELLITUS
     Dosage: INITIALLY 5MG REDUCED TO 2.5MG AND THEN WITHDRAWN
     Route: 048
  2. ONGLYZA TABS 2.5 MG [Suspect]
     Indication: TYPE 2 DIABETES MELLITUS
     Route: 048
  3. ACTOS [Suspect]

REACTIONS (3)
  - Cardiac failure [Recovered/Resolved]
  - Myocardial infarction [Unknown]
  - Creatinine renal clearance increased [Unknown]
